FAERS Safety Report 7554768-6 (Version None)
Quarter: 2011Q2

REPORT INFORMATION
  Report Type: 
  Country: None (occurrence: None)
  Receive Date: 20110614
  Receipt Date: 20110614
  Transmission Date: 20111010
  Serious: Yes (Hospitalization)
  Sender: FDA-Public Use
  Company Number: None

PATIENT
  Age: 60 Year
  Sex: Female
  Weight: 70.3075 kg

DRUGS (4)
  1. XANAX [Concomitant]
  2. VASOTEC [Concomitant]
  3. PREVACID [Suspect]
     Indication: GASTRIC PH DECREASED
     Dosage: 1 CAPSULE ONCE A DAY PO
     Route: 048
     Dates: start: 20110127, end: 20110315
  4. PEN INSULIN [Concomitant]

REACTIONS (9)
  - DIZZINESS [None]
  - FALL [None]
  - MUSCULAR WEAKNESS [None]
  - CRYING [None]
  - ARTHRALGIA [None]
  - PRODUCT LABEL ISSUE [None]
  - PRODUCT TAMPERING [None]
  - GASTRIC PH DECREASED [None]
  - EXPIRED DRUG ADMINISTERED [None]
